FAERS Safety Report 24690358 (Version 1)
Quarter: 2024Q4

REPORT INFORMATION
  Report Type: Spontaneous
  Country: GB (occurrence: GB)
  Receive Date: 20241203
  Receipt Date: 20241203
  Transmission Date: 20250115
  Serious: Yes (Other)
  Sender: MYLAN
  Company Number: GB-MYLANLABS-2024M1105774

PATIENT
  Age: 29 Year
  Sex: Female

DRUGS (1)
  1. OLANZAPINE [Suspect]
     Active Substance: OLANZAPINE
     Indication: Borderline personality disorder
     Dosage: 300 MILLIGRAM, Q2W (DEPOT 300MG FORTNIGHTLY)
     Route: 065

REACTIONS (1)
  - Violence-related symptom [Unknown]
